FAERS Safety Report 7938522-9 (Version None)
Quarter: 2011Q4

REPORT INFORMATION
  Report Type: 
  Country: None (occurrence: None)
  Receive Date: 20111123
  Receipt Date: 20111115
  Transmission Date: 20120403
  Serious: Yes (Hospitalization)
  Sender: FDA-Public Use
  Company Number: JP-AMGEN-JPNCT2011008918

PATIENT
  Age: 61 Year
  Sex: Female
  Weight: 76 kg

DRUGS (20)
  1. CORTICOSTEROIDS [Concomitant]
     Indication: PROPHYLAXIS
     Dosage: UNK
     Route: 065
  2. PANITUMUMAB [Suspect]
     Indication: COLORECTAL CANCER
     Dosage: 6 MG/KG, Q2WK
     Route: 041
     Dates: start: 20100713, end: 20101018
  3. ERBITUX [Suspect]
     Indication: COLORECTAL CANCER
     Route: 041
     Dates: start: 20091101, end: 20100601
  4. ANTIHISTAMINES [Concomitant]
     Indication: PROPHYLAXIS
     Dosage: UNK
     Route: 065
  5. MICARDIS [Concomitant]
     Dosage: UNK
     Route: 048
  6. BEZATOL  SR [Concomitant]
     Dosage: UNK
     Route: 048
  7. LEVOLEUCOVORIN CALCIUM [Suspect]
     Indication: COLORECTAL CANCER
     Route: 041
     Dates: start: 20100713, end: 20101115
  8. DECADRON [Concomitant]
     Dosage: UNK
     Route: 042
  9. PROTECADIN [Concomitant]
     Dosage: UNK
     Route: 048
  10. ATARAX [Concomitant]
     Dosage: UNK
     Route: 048
  11. CYANOCOBALAMIN [Concomitant]
     Dosage: UNK
     Route: 048
  12. RESTAMIN [Concomitant]
     Dosage: UNK
     Route: 048
  13. SODIUM BICARBONATE [Suspect]
     Route: 042
  14. IRINOTECAN HYDROCHLORIDE [Suspect]
     Indication: COLORECTAL CANCER
     Route: 041
     Dates: start: 20100713, end: 20101115
  15. FLUOROURACIL [Suspect]
     Indication: COLORECTAL CANCER
     Route: 041
     Dates: start: 20100713, end: 20101115
  16. FAMOTIDINE [Concomitant]
     Dosage: UNK
     Route: 042
  17. OLOPATADINE HCL [Concomitant]
     Dosage: UNK
     Route: 048
  18. PANITUMUMAB [Suspect]
     Dosage: 4.8 MG/KG, Q2WK
     Route: 041
     Dates: start: 20101115, end: 20101115
  19. URSO 250 [Concomitant]
     Dosage: UNK
     Route: 048
  20. PURSENNID [Concomitant]
     Dosage: UNK
     Route: 048

REACTIONS (7)
  - DIZZINESS [None]
  - ANAESTHESIA DOLOROSA [None]
  - PARONYCHIA [None]
  - HYPOKALAEMIA [None]
  - INFUSION RELATED REACTION [None]
  - EYE DISCHARGE [None]
  - HYPOCALCAEMIA [None]
